FAERS Safety Report 7034099-3 (Version None)
Quarter: 2010Q4

REPORT INFORMATION
  Report Type: 
  Country: None (occurrence: None)
  Receive Date: 20101008
  Receipt Date: 20100930
  Transmission Date: 20110411
  Serious: Yes (Hospitalization)
  Sender: FDA-Public Use
  Company Number: US-US-EMD SERONO, INC.-7019612

PATIENT
  Sex: Female
  Weight: 3 kg

DRUGS (2)
  1. REBIF [Suspect]
     Route: 064
     Dates: start: 20090811, end: 20100101
  2. MIRAPEX [Concomitant]
     Route: 064

REACTIONS (2)
  - DRUG EXPOSURE DURING PREGNANCY [None]
  - PREMATURE BABY [None]
